FAERS Safety Report 20791163 (Version 1)
Quarter: 2022Q2

REPORT INFORMATION
  Report Type: Report from Study
  Country: CA (occurrence: CA)
  Receive Date: 20220505
  Receipt Date: 20220505
  Transmission Date: 20220720
  Serious: Yes (Hospitalization, Other)
  Sender: FDA-Public Use
  Company Number: CA-TAKEDA-2022TUS029599

PATIENT
  Age: 61 Year
  Sex: Female

DRUGS (15)
  1. VEDOLIZUMAB [Suspect]
     Active Substance: VEDOLIZUMAB
     Indication: Crohn^s disease
     Dosage: 300 MILLIGRAM
     Route: 042
     Dates: start: 20170613
  2. VEDOLIZUMAB [Suspect]
     Active Substance: VEDOLIZUMAB
     Dosage: 300 MILLIGRAM, Q4WEEKS
     Route: 042
     Dates: start: 20190611
  3. PREDNISONE [Concomitant]
     Active Substance: PREDNISONE
     Dosage: UNK UNK, PRN
  4. SPIRONOLACTONE [Concomitant]
     Active Substance: SPIRONOLACTONE
     Dosage: UNK
  5. FUROSEMIDE [Concomitant]
     Active Substance: FUROSEMIDE
     Indication: Abdominal distension
     Dosage: UNK
  6. PANTOPRAZOLE [Concomitant]
     Active Substance: PANTOPRAZOLE
     Dosage: 40 MILLIGRAM, QD
     Route: 048
  7. BACLOFEN [Concomitant]
     Active Substance: BACLOFEN
     Indication: Muscle spasms
     Dosage: UNK
  8. RIFAXIMIN [Concomitant]
     Active Substance: RIFAXIMIN
     Indication: Inflammatory bowel disease
     Dosage: 500 MILLIGRAM
     Route: 048
  9. ONDANSETRON [Concomitant]
     Active Substance: ONDANSETRON
     Indication: Nausea
     Dosage: UNK
  10. MAGNESIUM [Concomitant]
     Active Substance: MAGNESIUM
     Dosage: UNK UNK, 1/WEEK
  11. POTASSIUM [Concomitant]
     Active Substance: POTASSIUM
     Dosage: UNK
  12. VENOFER [Concomitant]
     Active Substance: IRON SUCROSE
     Dosage: UNK
  13. DULCOLAX NOS [Concomitant]
     Active Substance: BISACODYL OR DOCUSATE SODIUM
     Dosage: UNK
  14. LACTOSE [Concomitant]
     Active Substance: LACTOSE
     Dosage: UNK
  15. HYDROMORPHONE [Concomitant]
     Active Substance: HYDROMORPHONE
     Indication: Arthralgia
     Dosage: 2 MILLIGRAM, BID

REACTIONS (2)
  - Dyspnoea [Unknown]
  - Off label use [Unknown]

NARRATIVE: CASE EVENT DATE: 20190611
